FAERS Safety Report 11474394 (Version 1)
Quarter: 2015Q3

REPORT INFORMATION
  Report Type: Spontaneous
  Country: None (occurrence: None)
  Receive Date: 20150908
  Receipt Date: 20150908
  Transmission Date: 20151125
  Serious: Yes (Other)
  Sender: FDA-Public Use
  Company Number: None

PATIENT
  Age: 62 Year
  Sex: Male
  Weight: 104 kg

DRUGS (2)
  1. TRANEXAMIC ACID. [Suspect]
     Active Substance: TRANEXAMIC ACID
     Indication: THROMBIN TIME PROLONGED
     Route: 042
     Dates: start: 20150603
  2. TRANEXAMIC ACID. [Suspect]
     Active Substance: TRANEXAMIC ACID
     Indication: CORONARY ARTERY BYPASS
     Route: 042
     Dates: start: 20150603

REACTIONS (2)
  - Seizure [None]
  - Post procedural complication [None]

NARRATIVE: CASE EVENT DATE: 20150605
